FAERS Safety Report 12976816 (Version 2)
Quarter: 2016Q4

REPORT INFORMATION
  Report Type: Spontaneous
  Country: CH (occurrence: CH)
  Receive Date: 20161128
  Receipt Date: 20161223
  Transmission Date: 20170207
  Serious: Yes (Hospitalization, Other)
  Sender: FDA-Public Use
  Company Number: PHHY2016CH159847

PATIENT
  Sex: Female

DRUGS (2)
  1. ZOFRAN [Suspect]
     Active Substance: ONDANSETRON HYDROCHLORIDE
     Indication: VOMITING
  2. ZOFRAN [Suspect]
     Active Substance: ONDANSETRON HYDROCHLORIDE
     Indication: NAUSEA
     Dosage: 2 TO 3 (TABLETS) DF, QD DURING 90 DAYS
     Route: 065
     Dates: start: 201502

REACTIONS (6)
  - Dysstasia [Unknown]
  - Paralysis [Not Recovered/Not Resolved]
  - Polyneuropathy [Unknown]
  - Abasia [Unknown]
  - Paraesthesia [Not Recovered/Not Resolved]
  - Inappropriate schedule of drug administration [Unknown]
